FAERS Safety Report 5847471-1 (Version None)
Quarter: 2008Q3

REPORT INFORMATION
  Report Type: 
  Country: None (occurrence: None)
  Receive Date: 20080813
  Receipt Date: 20080804
  Transmission Date: 20090109
  Serious: Yes (Hospitalization, Other)
  Sender: FDA-Public Use
  Company Number: GXKR2008AU07306

PATIENT
  Age: 61 Year
  Sex: Male

DRUGS (9)
  1. MIRTAZAPINE [Suspect]
     Indication: DECREASED APPETITE
     Dosage: 15 MG, QD
  2. MIRTAZAPINE [Suspect]
     Indication: FLAT AFFECT
     Dosage: 15 MG, QD
  3. MIRTAZAPINE [Suspect]
     Indication: INSOMNIA
     Dosage: 15 MG, QD
  4. METFORMIN HCL [Concomitant]
  5. GLICLAZIDE (GLICLAZIDE) [Concomitant]
  6. IRBESARTAN [Concomitant]
  7. HYDROCHLOROTHIAZIDE [Concomitant]
  8. SALINE (SODIUM CHLORIDE) [Concomitant]
  9. INSULIN (INSULIN) [Concomitant]

REACTIONS (4)
  - BLOOD OSMOLARITY DECREASED [None]
  - BLOOD SODIUM DECREASED [None]
  - HYPONATRAEMIA [None]
  - SOMNOLENCE [None]
